FAERS Safety Report 8245998-9 (Version None)
Quarter: 2012Q1

REPORT INFORMATION
  Report Type: 
  Country: None (occurrence: None)
  Receive Date: 20120328
  Receipt Date: 20120328
  Transmission Date: 20120608
  Serious: No
  Sender: FDA-Public Use
  Company Number: None

PATIENT
  Age: 64 Year
  Sex: Male
  Weight: 81.8 kg

DRUGS (2)
  1. DABIGATRAN [Suspect]
     Indication: ATRIAL FIBRILLATION
     Dosage: MG PO
     Route: 048
     Dates: start: 20110501
  2. ASPIRIN [Suspect]
     Dates: start: 20110517

REACTIONS (4)
  - GASTRIC HAEMORRHAGE [None]
  - DIVERTICULUM [None]
  - HAEMORRHOIDS [None]
  - DUODENITIS [None]
